FAERS Safety Report 24543632 (Version 1)
Quarter: 2024Q4

REPORT INFORMATION
  Report Type: Report from Study
  Country: US (occurrence: US)
  Receive Date: 20241024
  Receipt Date: 20241024
  Transmission Date: 20250114
  Serious: Yes (Death)
  Sender: ACADIA PHARMACEUTICALS
  Company Number: US-ACADIA PHARMACEUTICALS INC.-ACA-2024-PIM-006144

PATIENT
  Sex: Male

DRUGS (14)
  1. NUPLAZID [Suspect]
     Active Substance: PIMAVANSERIN TARTRATE
     Indication: Parkinson^s disease
     Dosage: 34 MILLIGRAM, QD
     Route: 048
     Dates: start: 202403
  2. MIDODRINE [Concomitant]
     Active Substance: MIDODRINE
  3. FLUDROCORTISONE [Concomitant]
     Active Substance: FLUDROCORTISONE
  4. TRIAMCINOLONE [Concomitant]
     Active Substance: TRIAMCINOLONE
  5. TAMSULOSIN [Concomitant]
     Active Substance: TAMSULOSIN
  6. DONEPEZIL [Concomitant]
     Active Substance: DONEPEZIL
  7. MYRBETRIQ [Concomitant]
     Active Substance: MIRABEGRON
  8. CIPRO [Concomitant]
     Active Substance: CIPROFLOXACIN HYDROCHLORIDE
  9. KETOCONAZOLE [Concomitant]
     Active Substance: KETOCONAZOLE
  10. FINASTERIDE [Concomitant]
     Active Substance: FINASTERIDE
  11. CLONAZEPAM [Concomitant]
     Active Substance: CLONAZEPAM
  12. RASAGILINE [Concomitant]
     Active Substance: RASAGILINE
  13. QUETIAPINE [Concomitant]
     Active Substance: QUETIAPINE
  14. CARBOMER [Concomitant]
     Active Substance: CARBOMER

REACTIONS (1)
  - Parkinson^s disease [Fatal]
